FAERS Safety Report 10789326 (Version 1)
Quarter: 2015Q1

REPORT INFORMATION
  Report Type: Spontaneous
  Country: US (occurrence: US)
  Receive Date: 20150212
  Receipt Date: 20150212
  Transmission Date: 20150721
  Serious: No
  Sender: FDA-Public Use
  Company Number: US-GLAXOSMITHKLINE-A1076671A

PATIENT

DRUGS (1)
  1. ARIXTRA [Suspect]
     Active Substance: FONDAPARINUX SODIUM
     Indication: PRODUCT USED FOR UNKNOWN INDICATION
     Dosage: 10 MG/0.8 ML WITH A START DATE OF 05 APR 20147.5 MG/0.6 ML WITH A START DATE OF 10 MAR 2014
     Route: 065
     Dates: start: 20140310

REACTIONS (1)
  - Hearing impaired [Unknown]
